FAERS Safety Report 23389110 (Version 1)
Quarter: 2024Q1

REPORT INFORMATION
  Report Type: Spontaneous
  Country: US (occurrence: US)
  Receive Date: 20240110
  Receipt Date: 20240110
  Transmission Date: 20240410
  Serious: No
  Sender: FDA-Public Use
  Company Number: US-PFIZER INC-202400007676

PATIENT
  Age: 76 Year
  Sex: Female

DRUGS (1)
  1. METHOTREXATE SODIUM [Suspect]
     Active Substance: METHOTREXATE SODIUM
     Dosage: 25 MG
     Route: 058

REACTIONS (6)
  - Nausea [Unknown]
  - Fatigue [Unknown]
  - Brain fog [Unknown]
  - Joint swelling [Unknown]
  - Condition aggravated [Unknown]
  - Drug intolerance [Unknown]
